FAERS Safety Report 24871891 (Version 1)
Quarter: 2025Q1

REPORT INFORMATION
  Report Type: Spontaneous
  Country: ES (occurrence: ES)
  Receive Date: 20250122
  Receipt Date: 20250122
  Transmission Date: 20250408
  Serious: Yes (Other)
  Sender: VELOXIS PHARMACEUTICALS
  Company Number: ES-VELOXIS PHARMACEUTICALS, INC.-2025-VEL-00020

PATIENT
  Sex: Male

DRUGS (3)
  1. ENVARSUS XR [Suspect]
     Active Substance: TACROLIMUS
     Indication: Renal transplant
     Route: 065
  2. PREDNISONE [Suspect]
     Active Substance: PREDNISONE
     Indication: Renal transplant
     Route: 048
  3. PREDNISONE [Suspect]
     Active Substance: PREDNISONE
     Route: 048

REACTIONS (9)
  - Urinary tract obstruction [Unknown]
  - Nephropathy toxic [Unknown]
  - Nephropathy toxic [Unknown]
  - Neutropenia [Unknown]
  - Cardiovascular disorder [Unknown]
  - Urinary tract infection [Unknown]
  - BK virus infection [Unknown]
  - Cytomegalovirus infection [Unknown]
  - Infection [Unknown]
